FAERS Safety Report 8874194 (Version 1)
Quarter: 2012Q4

REPORT INFORMATION
  Report Type: 
  Country: US (occurrence: US)
  Receive Date: 20121023
  Receipt Date: 20121023
  Transmission Date: 20130627
  Serious: No
  Sender: FDA-Public Use
  Company Number: US-PFIZER INC-2012262312

PATIENT
  Age: 76 Year
  Sex: Male
  Weight: 71.66 kg

DRUGS (3)
  1. ADVIL [Suspect]
     Indication: PAIN
     Dosage: UNK, as needed
     Route: 048
     Dates: end: 20121018
  2. VASOTEC [Concomitant]
     Indication: HYPERTENSION
     Dosage: UNK
  3. METFORMIN [Concomitant]
     Indication: DIABETES MELLITUS
     Dosage: UNK

REACTIONS (2)
  - Abdominal discomfort [Unknown]
  - Abdominal distension [Unknown]
